FAERS Safety Report 19658282 (Version 1)
Quarter: 2021Q3

REPORT INFORMATION
  Report Type: Report from Study
  Country: None (occurrence: US)
  Receive Date: 20210805
  Receipt Date: 20210805
  Transmission Date: 20211014
  Serious: Yes (Hospitalization)
  Sender: FDA-Public Use
  Company Number: US-ABBVIE-21K-163-4019375-00

PATIENT
  Age: 53 Year
  Sex: Male

DRUGS (1)
  1. HUMIRA [Suspect]
     Active Substance: ADALIMUMAB
     Indication: PRODUCT USED FOR UNKNOWN INDICATION
     Dosage: CF
     Route: 058
     Dates: start: 20210717

REACTIONS (1)
  - Bell^s palsy [Unknown]

NARRATIVE: CASE EVENT DATE: 20210728
